FAERS Safety Report 6919102-0 (Version None)
Quarter: 2010Q3

REPORT INFORMATION
  Report Type: 
  Country: None (occurrence: None)
  Receive Date: 20100727
  Receipt Date: 20100727
  Transmission Date: 20110219
  Serious: Yes (Other)
  Sender: FDA-Public Use
  Company Number: CAR-2009-002

PATIENT
  Age: 62 Year
  Sex: Female

DRUGS (5)
  1. CARAFATE [Suspect]
     Indication: NAUSEA
     Dosage: 2 TABLESPOONS
     Dates: start: 20080901, end: 20090101
  2. CARAFATE [Suspect]
     Indication: NAUSEA
     Dosage: 1 TABLET QID
     Dates: start: 20090101
  3. HYDROCHLOROTHIAZIDE [Concomitant]
  4. PRILOSEC (OMEPRAZOLE) [Concomitant]
  5. LIBRAX (CHLORIDAZEPOXIDE CLIDINIUM) [Concomitant]

REACTIONS (2)
  - GLYCOSYLATED HAEMOGLOBIN INCREASED [None]
  - INCREASED INSULIN REQUIREMENT [None]
